FAERS Safety Report 4364705-3 (Version None)
Quarter: 2004Q2

REPORT INFORMATION
  Report Type: 
  Country: None (occurrence: None)
  Receive Date: 20040521
  Receipt Date: 20040430
  Transmission Date: 20050107
  Serious: Yes (Other)
  Sender: FDA-Public Use
  Company Number: GBS040514845

PATIENT
  Age: 85 Year
  Sex: Female
  Weight: 58 kg

DRUGS (14)
  1. FORTEO [Suspect]
     Indication: OSTEOPOROSIS
     Dates: start: 20031017, end: 20040323
  2. MAXITROL [Concomitant]
  3. CALCIUM  CARBONATE [Concomitant]
  4. LEVOTHYROXINE SODIUM [Concomitant]
  5. ACETAMINOPHEN [Concomitant]
  6. PREDNISOLONE [Concomitant]
  7. SYMBICORT [Concomitant]
  8. OMEPRAZOLE [Concomitant]
  9. ALENDRONATE SODIUM [Concomitant]
  10. FELODIPINE [Concomitant]
  11. FEFALEXIN [Concomitant]
  12. FUSIDIC ACID [Concomitant]
  13. IBUPROFEN [Concomitant]
  14. TEMAZEPAM [Concomitant]

REACTIONS (2)
  - CULTURE URINE POSITIVE [None]
  - MALAISE [None]
